FAERS Safety Report 20098785 (Version 1)
Quarter: 2021Q4

REPORT INFORMATION
  Report Type: Spontaneous
  Country: ES (occurrence: ES)
  Receive Date: 20211122
  Receipt Date: 20211122
  Transmission Date: 20220303
  Serious: Yes (Hospitalization, Other)
  Sender: FDA-Public Use
  Company Number: ES-ABBVIE-21K-144-4166232-00

PATIENT
  Age: 59 Year
  Sex: Male

DRUGS (6)
  1. VALPROATE [Suspect]
     Active Substance: VALPROIC ACID
     Indication: Bipolar I disorder
     Route: 065
  2. VALPROATE [Suspect]
     Active Substance: VALPROIC ACID
     Indication: Mania
  3. LITHIUM [Suspect]
     Active Substance: LITHIUM
     Indication: Bipolar I disorder
     Route: 065
  4. LITHIUM [Suspect]
     Active Substance: LITHIUM
     Indication: Mania
  5. ZOTEPINE [Suspect]
     Active Substance: ZOTEPINE
     Indication: Bipolar I disorder
     Route: 065
  6. ZOTEPINE [Suspect]
     Active Substance: ZOTEPINE
     Indication: Mania

REACTIONS (4)
  - Dementia Alzheimer^s type [Recovering/Resolving]
  - Cerebral atrophy [Unknown]
  - Hippocampal atrophy [Unknown]
  - Parkinsonism [Recovering/Resolving]

NARRATIVE: CASE EVENT DATE: 20170101
